FAERS Safety Report 8936981 (Version 4)
Quarter: 2013Q3

REPORT INFORMATION
  Report Type: Spontaneous
  Country: US (occurrence: US)
  Receive Date: 20121130
  Receipt Date: 20130828
  Transmission Date: 20140515
  Serious: Yes (Other)
  Sender: FDA-Public Use
  Company Number: US-ROCHE-718618

PATIENT
  Age: 29 Year
  Sex: Male
  Weight: 79.4 kg

DRUGS (1)
  1. ACCUTANE [Suspect]
     Indication: ACNE
     Route: 065
     Dates: start: 199806, end: 199812

REACTIONS (6)
  - Colitis ulcerative [Unknown]
  - Gastrointestinal injury [Unknown]
  - Gastrointestinal ulcer haemorrhage [Unknown]
  - Inflammatory bowel disease [Unknown]
  - Depression [Unknown]
  - Bone metabolism disorder [Unknown]
